FAERS Safety Report 12652009 (Version 8)
Quarter: 2017Q2

REPORT INFORMATION
  Report Type: Spontaneous
  Country: US (occurrence: US)
  Receive Date: 20160815
  Receipt Date: 20170613
  Transmission Date: 20170830
  Serious: No
  Sender: FDA-Public Use
  Company Number: US-ACTELION-A-NJ2016-140278

PATIENT
  Age: 65 Year
  Sex: Female

DRUGS (20)
  1. VALSARTAN. [Concomitant]
     Active Substance: VALSARTAN
  2. UPTRAVI [Suspect]
     Active Substance: SELEXIPAG
     Dosage: 200 MCG, BID
     Route: 048
  3. DULOXETINE. [Concomitant]
     Active Substance: DULOXETINE
  4. FUROSEMIDE. [Concomitant]
     Active Substance: FUROSEMIDE
  5. AMBRISENTAN [Suspect]
     Active Substance: AMBRISENTAN
     Indication: PULMONARY ARTERIAL HYPERTENSION
     Dosage: 10 MG, QD
     Route: 048
     Dates: start: 20130923
  6. TRAMADOL. [Concomitant]
     Active Substance: TRAMADOL
  7. JANUVIA [Concomitant]
     Active Substance: SITAGLIPTIN PHOSPHATE
  8. UPTRAVI [Suspect]
     Active Substance: SELEXIPAG
     Indication: PULMONARY ARTERIAL HYPERTENSION
     Dosage: 1000 MCG, BID
     Route: 048
  9. UPTRAVI [Suspect]
     Active Substance: SELEXIPAG
     Dosage: 600 MCG, UNK
     Route: 048
     Dates: start: 20160627
  10. UPTRAVI [Suspect]
     Active Substance: SELEXIPAG
     Dosage: 200 MCG, QAM
     Route: 048
     Dates: start: 20160627
  11. ADCIRCA [Concomitant]
     Active Substance: TADALAFIL
     Dosage: UNK
     Dates: start: 20130812
  12. VOLTAREN [Concomitant]
     Active Substance: DICLOFENAC SODIUM
  13. METFORMIN [Concomitant]
     Active Substance: METFORMIN HYDROCHLORIDE
  14. UPTRAVI [Suspect]
     Active Substance: SELEXIPAG
     Dosage: 400 MCG, QPM
     Route: 048
     Dates: start: 20160627
  15. UPTRAVI [Suspect]
     Active Substance: SELEXIPAG
     Dosage: 600 MCG, BID
     Route: 048
  16. UPTRAVI [Suspect]
     Active Substance: SELEXIPAG
     Dosage: 1000 MCG, UNK
     Route: 048
  17. UPTRAVI [Suspect]
     Active Substance: SELEXIPAG
     Dosage: 800 MCG, BID
     Route: 048
     Dates: start: 20160627
  18. LINZESS [Concomitant]
     Active Substance: LINACLOTIDE
  19. ALLOPURINOL. [Concomitant]
     Active Substance: ALLOPURINOL
  20. GLIPIZIDE. [Concomitant]
     Active Substance: GLIPIZIDE

REACTIONS (16)
  - Polycythaemia [Unknown]
  - Burning sensation [Unknown]
  - Headache [Unknown]
  - Arthralgia [Unknown]
  - Pain in extremity [Unknown]
  - Pain [Unknown]
  - Rash [Unknown]
  - Rash pruritic [Unknown]
  - Pain in jaw [Unknown]
  - Diarrhoea [Unknown]
  - Migraine [Unknown]
  - Haemoptysis [Unknown]
  - Musculoskeletal pain [Unknown]
  - Back pain [Unknown]
  - Myalgia [Unknown]
  - Nausea [Unknown]

NARRATIVE: CASE EVENT DATE: 201705
